FAERS Safety Report 21134562 (Version 5)
Quarter: 2022Q4

REPORT INFORMATION
  Report Type: Report from Study
  Country: US (occurrence: US)
  Receive Date: 20220727
  Receipt Date: 20221107
  Transmission Date: 20230112
  Serious: No
  Sender: FDA-Public Use
  Company Number: US-NOVARTISTESTPH-NVSC2022US168939

PATIENT
  Sex: Female

DRUGS (1)
  1. ENTRESTO [Suspect]
     Active Substance: SACUBITRIL\VALSARTAN
     Indication: Product used for unknown indication
     Dosage: 1 DOSAGE FORM, BID (24/26 MG)
     Route: 048
     Dates: start: 20220701

REACTIONS (16)
  - Confusional state [Unknown]
  - Nervousness [Unknown]
  - Gout [Recovering/Resolving]
  - Joint swelling [Recovering/Resolving]
  - Feeling abnormal [Unknown]
  - Dyspnoea [Unknown]
  - Sneezing [Unknown]
  - Ear discomfort [Unknown]
  - Skin irritation [Recovering/Resolving]
  - Rash macular [Recovering/Resolving]
  - Poor peripheral circulation [Unknown]
  - Anxiety [Unknown]
  - Insomnia [Unknown]
  - Constipation [Unknown]
  - Decreased appetite [Unknown]
  - Abdominal pain upper [Unknown]
